FAERS Safety Report 8727218 (Version 5)
Quarter: 2013Q2

REPORT INFORMATION
  Report Type: Spontaneous
  Country: US (occurrence: US)
  Receive Date: 20120816
  Receipt Date: 20130429
  Transmission Date: 20140414
  Serious: Yes (Hospitalization)
  Sender: FDA-Public Use
  Company Number: US-B.I. PHARMACEUTICALS,INC./RIDGEFIELD-2012-BP-18731BP

PATIENT
  Age: 71 Year
  Sex: Male
  Weight: 109.77 kg

DRUGS (17)
  1. PRADAXA [Suspect]
     Indication: ANTICOAGULANT THERAPY
     Dosage: 300 MG
     Dates: start: 20110902, end: 20110918
  2. PRADAXA [Suspect]
     Indication: ATRIAL FIBRILLATION
     Dosage: 150 MG
     Dates: start: 20110921, end: 20111123
  3. PROTONIX [Concomitant]
     Dosage: 40 MG
  4. CARAFATE [Concomitant]
     Dosage: 4 G
  5. ACTOS [Concomitant]
     Dosage: 30 MG
     Dates: start: 2005, end: 2012
  6. TYLENOL [Concomitant]
     Indication: DISCOMFORT
  7. MULTAQ [Concomitant]
     Dosage: 800 MG
     Dates: start: 2011, end: 2012
  8. LIPITOR [Concomitant]
     Dosage: 10 MG
     Dates: start: 2005, end: 2011
  9. LISINOPRIL [Concomitant]
     Dosage: 5 MG
  10. CIALIS [Concomitant]
  11. SONATA [Concomitant]
     Indication: INSOMNIA
  12. DIGOXIN [Concomitant]
     Dosage: 0.25 MG
  13. PLAVIX [Concomitant]
     Dates: start: 2005, end: 2012
  14. TRIAMTERENE HCTZ [Concomitant]
     Dates: start: 2008, end: 2011
  15. TRIAMTERENE HCTZ [Concomitant]
     Dates: start: 2005, end: 2012
  16. ASPIRIN [Concomitant]
     Dates: start: 2000, end: 2012
  17. ZALEPLON [Concomitant]
     Dates: start: 2009, end: 2012

REACTIONS (3)
  - Upper gastrointestinal haemorrhage [Unknown]
  - Haemorrhagic anaemia [Unknown]
  - Gastrointestinal haemorrhage [Unknown]
